FAERS Safety Report 7266095-5 (Version None)
Quarter: 2011Q1

REPORT INFORMATION
  Report Type: 
  Country: None (occurrence: None)
  Receive Date: 20110131
  Receipt Date: 20110121
  Transmission Date: 20110831
  Serious: Yes (Other)
  Sender: FDA-Public Use
  Company Number: US-ENDO PHARMACEUTICALS INC.-OPER20110022

PATIENT
  Sex: Female
  Weight: 54.48 kg

DRUGS (2)
  1. OPANA ER [Suspect]
     Indication: PAIN IN EXTREMITY
     Route: 048
  2. OPANA ER [Suspect]
     Route: 048
     Dates: start: 20110121, end: 20110121

REACTIONS (1)
  - ACCIDENTAL OVERDOSE [None]
